FAERS Safety Report 14179433 (Version 3)
Quarter: 2018Q1

REPORT INFORMATION
  Report Type: Spontaneous
  Country: US (occurrence: US)
  Receive Date: 20171110
  Receipt Date: 20180111
  Transmission Date: 20180508
  Serious: Yes (Hospitalization, Other)
  Sender: FDA-Public Use
  Company Number: US-SAOL THERAPEUTICS-2017SAO01746

PATIENT
  Age: 58 Year
  Sex: Female
  Weight: 78 kg

DRUGS (4)
  1. BACLOFEN. [Suspect]
     Active Substance: BACLOFEN
     Indication: MULTIPLE SCLEROSIS
  2. BACLOFEN. [Suspect]
     Active Substance: BACLOFEN
     Indication: MUSCLE SPASTICITY
     Dosage: UNK, \DAY
     Route: 037
  3. VALIUM [Concomitant]
     Active Substance: DIAZEPAM
  4. ORAL BACLOFEN [Concomitant]
     Active Substance: BACLOFEN

REACTIONS (4)
  - Tremor [Unknown]
  - Drug withdrawal syndrome [Unknown]
  - Incorrect drug administration duration [Unknown]
  - Mobility decreased [Unknown]

NARRATIVE: CASE EVENT DATE: 20171102
